FAERS Safety Report 9293746 (Version 1)
Quarter: 2013Q2

REPORT INFORMATION
  Report Type: Spontaneous
  Country: DE (occurrence: DE)
  Receive Date: 20130516
  Receipt Date: 20130516
  Transmission Date: 20140414
  Serious: Yes (Hospitalization)
  Sender: FDA-Public Use
  Company Number: DE-MERCK-1305DEU008569

PATIENT
  Age: 55 Year
  Sex: Female
  Weight: 126 kg

DRUGS (3)
  1. JANUVIA [Suspect]
     Indication: TYPE 2 DIABETES MELLITUS
     Dosage: 50 MG, BID
     Route: 048
     Dates: start: 20130219, end: 20130312
  2. XELEVIA [Concomitant]
     Dosage: UNK
     Dates: end: 20130312
  3. METFORMIN [Concomitant]
     Dosage: UNK

REACTIONS (1)
  - Drug eruption [Not Recovered/Not Resolved]
